FAERS Safety Report 7288528-0 (Version None)
Quarter: 2011Q1

REPORT INFORMATION
  Report Type: 
  Country: None (occurrence: None)
  Receive Date: 20110202
  Receipt Date: 20110117
  Transmission Date: 20110831
  Serious: Yes (Hospitalization)
  Sender: FDA-Public Use
  Company Number: AUR-APL-2011-00219

PATIENT
  Age: 73 Year
  Sex: Male

DRUGS (4)
  1. GARDENALE (PHENOBARBITAL) [Concomitant]
  2. ATENOLOL [Suspect]
     Indication: HYPERTENSION
     Dosage: 50MG-DAILY-ORAL
     Route: 048
     Dates: start: 20080101, end: 20110104
  3. NORVASC [Concomitant]
  4. BLOPRESS (CANDESARTAN CILEXETIL) [Concomitant]

REACTIONS (3)
  - SINUS BRADYCARDIA [None]
  - VENTRICULAR HYPERTROPHY [None]
  - FLUID OVERLOAD [None]
